FAERS Safety Report 21665846 (Version 1)
Quarter: 2022Q4

REPORT INFORMATION
  Report Type: Spontaneous
  Country: US (occurrence: US)
  Receive Date: 20221201
  Receipt Date: 20221201
  Transmission Date: 20230113
  Serious: No
  Sender: FDA-Public Use
  Company Number: US-SA-SAC20221128001250

PATIENT
  Sex: Male

DRUGS (2)
  1. DUPIXENT [Suspect]
     Active Substance: DUPILUMAB
     Indication: Dermatitis atopic
     Dosage: 300 MG QOW
     Route: 058
  2. BETAMETHASONE [Concomitant]
     Active Substance: BETAMETHASONE

REACTIONS (4)
  - Rash macular [Unknown]
  - Rash pruritic [Unknown]
  - Skin hypertrophy [Unknown]
  - Therapeutic product effect decreased [Unknown]
